FAERS Safety Report 18948653 (Version 1)
Quarter: 2021Q1

REPORT INFORMATION
  Report Type: Spontaneous
  Country: US (occurrence: US)
  Receive Date: 20210226
  Receipt Date: 20210226
  Transmission Date: 20210420
  Serious: No
  Sender: FDA-Public Use
  Company Number: US-ROCHE-1972758

PATIENT
  Age: 41 Year
  Sex: Male
  Weight: 114 kg

DRUGS (15)
  1. XOLAIR [Suspect]
     Active Substance: OMALIZUMAB
     Route: 058
     Dates: start: 20161110
  2. TAGAMET [Concomitant]
     Active Substance: CIMETIDINE
  3. ANORO ELLIPTA [Concomitant]
     Active Substance: UMECLIDINIUM BROMIDE\VILANTEROL TRIFENATATE
     Indication: CHRONIC OBSTRUCTIVE PULMONARY DISEASE
  4. XOLAIR [Suspect]
     Active Substance: OMALIZUMAB
     Dosage: RESTARTED 9 MONTHS AFTER STOPPING
     Route: 058
     Dates: start: 201611
  5. ZYRTEC (UNITED STATES) [Concomitant]
  6. HUMIRA [Concomitant]
     Active Substance: ADALIMUMAB
     Indication: ANKYLOSING SPONDYLITIS
  7. DECADRON [Concomitant]
     Active Substance: DEXAMETHASONE
  8. PEPCIDIN [Concomitant]
  9. ATARAX [Concomitant]
     Active Substance: HYDROXYZINE HYDROCHLORIDE
  10. VISTARIL [Concomitant]
     Active Substance: HYDROXYZINE PAMOATE
  11. PREDNISONE. [Concomitant]
     Active Substance: PREDNISONE
     Dosage: BETWEEN 5 AND 50 MG
     Route: 048
  12. HUMIRA [Concomitant]
     Active Substance: ADALIMUMAB
     Indication: HIDRADENITIS
     Dosage: STARTED 2 TO 2.5 YEARS AGO
     Route: 058
  13. HYDROCHLOROTHIAZIDE. [Concomitant]
     Active Substance: HYDROCHLOROTHIAZIDE
     Indication: HYPERTENSION
     Route: 048
  14. XOLAIR [Suspect]
     Active Substance: OMALIZUMAB
     Indication: CHRONIC SPONTANEOUS URTICARIA
     Dosage: STARTED 4 YEARS AGO AND STOPPED ABOUT 2 YEARS AGO
     Route: 058
     Dates: start: 201611
  15. FAMOTIDINE. [Concomitant]
     Active Substance: FAMOTIDINE
     Indication: GASTROOESOPHAGEAL REFLUX DISEASE
     Route: 048

REACTIONS (6)
  - Urticaria [Recovered/Resolved]
  - Pruritus [Recovered/Resolved]
  - Blood testosterone increased [Unknown]
  - Epigastric discomfort [Recovered/Resolved]
  - Condition aggravated [Recovered/Resolved]
  - Cough [Recovered/Resolved]

NARRATIVE: CASE EVENT DATE: 201706
